FAERS Safety Report 6236298-7 (Version None)
Quarter: 2009Q2

REPORT INFORMATION
  Report Type: 
  Country: None (occurrence: None)
  Receive Date: 20090616
  Receipt Date: 20090604
  Transmission Date: 20091009
  Serious: Yes (Other)
  Sender: FDA-Public Use
  Company Number: 2008AL012004

PATIENT
  Age: 45 Year
  Sex: Female
  Weight: 101.1521 kg

DRUGS (6)
  1. DIGOXIN [Suspect]
     Indication: CARDIAC DISORDER
     Dosage: PO
     Route: 048
  2. DIFLUCAN [Concomitant]
  3. GLUCOPHAGE [Concomitant]
  4. INSULIN [Concomitant]
  5. GLUCOTROL [Concomitant]
  6. HYDROCHLOROTHIAZIDE [Concomitant]

REACTIONS (10)
  - CARDIAC DISORDER [None]
  - CEREBROVASCULAR ACCIDENT [None]
  - CONDITION AGGRAVATED [None]
  - DIZZINESS [None]
  - ECONOMIC PROBLEM [None]
  - MULTIPLE INJURIES [None]
  - PARAESTHESIA [None]
  - PARAESTHESIA ORAL [None]
  - POLYDIPSIA [None]
  - POLYURIA [None]
